FAERS Safety Report 8020059-2 (Version None)
Quarter: 2012Q1

REPORT INFORMATION
  Report Type: 
  Country: None (occurrence: None)
  Receive Date: 20120103
  Receipt Date: 20111230
  Transmission Date: 20120608
  Serious: No
  Sender: FDA-Public Use
  Company Number: US-B.I. PHARMACEUTICALS,INC./RIDGEFIELD-2012-BP-00045BP

PATIENT
  Sex: Female

DRUGS (3)
  1. PLAVIX [Concomitant]
     Indication: ATRIAL FIBRILLATION
     Dates: start: 20111216
  2. PRADAXA [Suspect]
     Indication: ATRIAL FIBRILLATION
     Dosage: 300 MG
     Route: 048
     Dates: start: 20111216
  3. MEDICATIONS NOT FURTHER SPECIFIED [Concomitant]

REACTIONS (2)
  - THROAT IRRITATION [None]
  - COUGH [None]
